FAERS Safety Report 7456171-6 (Version None)
Quarter: 2011Q2

REPORT INFORMATION
  Report Type: 
  Country: None (occurrence: None)
  Receive Date: 20110426
  Receipt Date: 20110412
  Transmission Date: 20111010
  Serious: Yes (Hospitalization)
  Sender: FDA-Public Use
  Company Number: 031080

PATIENT
  Sex: Female
  Weight: 80.7 kg

DRUGS (4)
  1. CIMZIA [Suspect]
     Indication: CROHN'S DISEASE
     Dosage: (400 MG 1X/MONTH SUBCUTANEOUS)
     Route: 058
     Dates: start: 20110201, end: 20110101
  2. PLAVIX [Concomitant]
  3. PENTASA [Concomitant]
  4. METOPROLOL SUCCINATE [Concomitant]

REACTIONS (8)
  - HAEMOGLOBIN DECREASED [None]
  - HAEMATOCRIT DECREASED [None]
  - ARTERIAL INJURY [None]
  - JOINT INJURY [None]
  - LIGAMENT INJURY [None]
  - LACERATION [None]
  - TENDON INJURY [None]
  - DIZZINESS [None]
